FAERS Safety Report 12839129 (Version 4)
Quarter: 2017Q1

REPORT INFORMATION
  Report Type: Spontaneous
  Country: US (occurrence: US)
  Receive Date: 20161012
  Receipt Date: 20170104
  Transmission Date: 20170428
  Serious: Yes (Other)
  Sender: FDA-Public Use
  Company Number: US-BAYER-2016-196244

PATIENT
  Age: 28 Year
  Sex: Female

DRUGS (9)
  1. SUBUTEX [Concomitant]
     Active Substance: BUPRENORPHINE HYDROCHLORIDE
     Indication: SUPPLEMENTATION THERAPY
     Dosage: UNK
  2. CIPRO [Suspect]
     Active Substance: CIPROFLOXACIN HYDROCHLORIDE
  3. DIFFLAM ANTI-INFLAMMATORY [Concomitant]
     Indication: SUPPLEMENTATION THERAPY
     Dosage: UNK
  4. KLONOPIN [Concomitant]
     Active Substance: CLONAZEPAM
     Indication: DEPRESSION
  5. PRILOSEC [Concomitant]
     Active Substance: OMEPRAZOLE MAGNESIUM
     Indication: GASTROOESOPHAGEAL REFLUX DISEASE
     Dosage: UNK
  6. DOXEPIN [Concomitant]
     Active Substance: DOXEPIN
     Indication: DEPRESSION
     Dosage: UNK
  7. KLONOPIN [Concomitant]
     Active Substance: CLONAZEPAM
     Indication: ANXIETY
     Dosage: UNK
  8. AVELOX [Suspect]
     Active Substance: MOXIFLOXACIN HYDROCHLORIDE
     Indication: SUPPLEMENTATION THERAPY
     Dosage: 400 MG, UNK
     Dates: start: 20090917, end: 20090927
  9. ANTIDEPRESSANTS [Concomitant]
     Active Substance: UNSPECIFIED INGREDIENT
     Indication: SUPPLEMENTATION THERAPY

REACTIONS (11)
  - Neuropathy peripheral [None]
  - Skin injury [None]
  - Musculoskeletal injury [None]
  - Bipolar disorder [None]
  - Pain [None]
  - Musculoskeletal disorder [None]
  - Nervous system disorder [None]
  - Personality change [None]
  - Cardiovascular disorder [None]
  - Post-traumatic stress disorder [None]
  - Mental disorder [None]

NARRATIVE: CASE EVENT DATE: 2013
